FAERS Safety Report 6917241-1 (Version None)
Quarter: 2010Q3

REPORT INFORMATION
  Report Type: 
  Country: None (occurrence: None)
  Receive Date: 20100810
  Receipt Date: 20100726
  Transmission Date: 20110219
  Serious: Yes (Death, Other)
  Sender: FDA-Public Use
  Company Number: ES-ROCHE-720026

PATIENT
  Age: 48 Year
  Sex: Male

DRUGS (5)
  1. PEGINTERFERON ALFA-2A [Suspect]
     Indication: HEPATITIS C
     Dosage: PRIOR TOPSE, DISCONTINUED DUE TO TOXICITY
     Route: 065
  2. PEGINTERFERON ALFA-2A [Suspect]
     Route: 065
  3. RIBAVIRIN [Suspect]
     Indication: HEPATITIS C
     Dosage: PRIOR T PSE, DISCONTINUED DUE TO TOXICITY
     Route: 065
  4. RIBAVIRIN [Suspect]
     Dosage: MEAN DOSE: 14.52 +/- 2.21.
     Route: 065
  5. CYCLOSPORINE [Concomitant]
     Indication: IMMUNOSUPPRESSANT DRUG THERAPY

REACTIONS (2)
  - HAEMATOTOXICITY [None]
  - INFECTION [None]
